FAERS Safety Report 13014128 (Version 2)
Quarter: 2017Q1

REPORT INFORMATION
  Report Type: Spontaneous
  Country: PT (occurrence: PT)
  Receive Date: 20161209
  Receipt Date: 20170112
  Transmission Date: 20170428
  Serious: Yes (Other)
  Sender: FDA-Public Use
  Company Number: PT-GILEAD-2016-0247320

PATIENT
  Age: 27 Year
  Sex: Male

DRUGS (2)
  1. STRIBILD [Suspect]
     Active Substance: COBICISTAT\ELVITEGRAVIR\EMTRICITABINE\TENOFOVIR DISOPROXIL FUMARATE
     Indication: HIV INFECTION
     Dosage: UNK
     Route: 065
     Dates: start: 20160510, end: 2016
  2. STRIBILD [Suspect]
     Active Substance: COBICISTAT\ELVITEGRAVIR\EMTRICITABINE\TENOFOVIR DISOPROXIL FUMARATE
     Dosage: UNK
     Route: 065
     Dates: start: 2016

REACTIONS (7)
  - Motor dysfunction [Unknown]
  - Meningitis cryptococcal [Unknown]
  - Immune reconstitution inflammatory syndrome [Unknown]
  - Psychomotor hyperactivity [Unknown]
  - Dysarthria [Unknown]
  - Paraesthesia [Unknown]
  - Psychomotor retardation [Unknown]
